FAERS Safety Report 6381566-1 (Version None)
Quarter: 2009Q4

REPORT INFORMATION
  Report Type: 
  Country: None (occurrence: None)
  Receive Date: 20090925
  Receipt Date: 20090915
  Transmission Date: 20100525
  Serious: Yes (Hospitalization)
  Sender: FDA-Public Use
  Company Number: DSA_34090_2009

PATIENT
  Age: 73 Year
  Sex: Male

DRUGS (6)
  1. ENALAPRIL MALEATE [Suspect]
     Indication: HYPERTENSION
     Dosage: (20 MG QD ORAL), (20 MG QD ORAL)
     Route: 048
     Dates: start: 19990101, end: 20050701
  2. ENALAPRIL MALEATE [Suspect]
     Indication: HYPERTENSION
     Dosage: (20 MG QD ORAL), (20 MG QD ORAL)
     Route: 048
     Dates: start: 20060101
  3. FENOFIBRATE [Suspect]
     Indication: HYPERCHOLESTEROLAEMIA
     Dosage: (DF ORAL)
     Route: 048
     Dates: end: 20050701
  4. ACETAMINOPHEN W/ CODEINE [Suspect]
     Indication: DRUG USE FOR UNKNOWN INDICATION
     Dosage: (DF ORAL)
     Route: 048
     Dates: end: 20050701
  5. ESOMEPRAZOLE MAGNESIUM [Concomitant]
  6. SAW PALMETTO /00833501/ [Concomitant]

REACTIONS (2)
  - PANCREATITIS ACUTE [None]
  - POLYCYTHAEMIA [None]
